FAERS Safety Report 4875004-5 (Version None)
Quarter: 2006Q1

REPORT INFORMATION
  Report Type: 
  Country: None (occurrence: None)
  Receive Date: 20060104
  Receipt Date: 20051220
  Transmission Date: 20060701
  Serious: Yes (Other)
  Sender: FDA-Public Use
  Company Number: 220508

PATIENT
  Age: 76 Year
  Sex: Female

DRUGS (13)
  1. RITUXAN [Suspect]
     Indication: NON-HODGKIN'S LYMPHOMA
     Dosage: 550 MG, UNK; INTRAVENOUS
     Route: 042
     Dates: start: 20041014, end: 20041209
  2. DOXORUBICIN HYDROCHLORIDE [Suspect]
     Indication: NON-HODGKIN'S LYMPHOMA
     Dosage: 58 MG, UNK, IV BOLUS
     Route: 040
     Dates: start: 20041014, end: 20050214
  3. CYCLOPHOSPHAMIDE [Suspect]
     Indication: NON-HODGKIN'S LYMPHOMA
     Dosage: 880 MG, UNK; INTRAVENOUS
     Route: 042
     Dates: start: 20041024, end: 20050214
  4. ONCOVIN [Suspect]
     Indication: NON-HODGKIN'S LYMPHOMA
     Dosage: 1.6 MG, UNK; INTRAVENOUS
     Route: 042
     Dates: start: 20041014, end: 20050214
  5. PREDONINE (PREDNISOLONE, PREDNISOLONE [Suspect]
     Indication: NON-HODGKIN'S LYMPHOMA
     Dosage: 90 MG, UNK; INTRAVENOUS; 45 MG, UNK; INTRAVENOUS
     Route: 042
     Dates: start: 20041014
  6. PREDONINE (PREDNISOLONE, PREDNISOLONE [Suspect]
     Indication: NON-HODGKIN'S LYMPHOMA
     Dosage: 90 MG, UNK; INTRAVENOUS; 45 MG, UNK; INTRAVENOUS
     Route: 042
     Dates: start: 20041104
  7. IBUPROFEN [Concomitant]
  8. DEXCHLORPHENIRAMINE MALEATE [Concomitant]
  9. NIFEDIPINE [Concomitant]
  10. DIFLUCAN (FLUCONAZOLE) [Concomitant]
  11. MUCOSTA (REBAMIPIDE) [Concomitant]
  12. INSULIN (HUMULIN N ) (NPH HUMAN INSULIN ISOPHANE SUSPENSION) [Concomitant]
  13. FAMOTIDINE [Concomitant]

REACTIONS (9)
  - BLOOD PRESSURE DECREASED [None]
  - BLOOD SODIUM DECREASED [None]
  - CHILLS [None]
  - DIFFICULTY IN WALKING [None]
  - DIZZINESS [None]
  - HAEMOGLOBIN DECREASED [None]
  - NEUTROPHIL COUNT DECREASED [None]
  - PLATELET COUNT DECREASED [None]
  - WHITE BLOOD CELL COUNT DECREASED [None]
